FAERS Safety Report 9623158 (Version 1)
Quarter: 2013Q4

REPORT INFORMATION
  Report Type: Spontaneous
  Country: GB (occurrence: None)
  Receive Date: 20131010
  Receipt Date: 20131010
  Transmission Date: 20140711
  Serious: Yes (Other)
  Sender: FDA-Public Use
  Company Number: GB-DEXPHARM-20130686

PATIENT
  Age: 34 Year
  Sex: Female

DRUGS (3)
  1. CLOZARIL (CLOZAPINE) [Suspect]
     Indication: SCHIZOAFFECTIVE DISORDER
     Route: 048
     Dates: start: 20130702
  2. BECLOMETHASONE DIPROPIONATE [Concomitant]
  3. LAXIDE [Concomitant]

REACTIONS (6)
  - Alanine aminotransferase increased [None]
  - Differential white blood cell count abnormal [None]
  - Dizziness [None]
  - Eosinophil count increased [None]
  - Nausea [None]
  - Antipsychotic drug level increased [None]
